FAERS Safety Report 7583716-8 (Version None)
Quarter: 2011Q2

REPORT INFORMATION
  Report Type: 
  Country: None (occurrence: None)
  Receive Date: 20110630
  Receipt Date: 20110622
  Transmission Date: 20111010
  Serious: Yes (Hospitalization)
  Sender: FDA-Public Use
  Company Number: B0729054A

PATIENT

DRUGS (1)
  1. MELPHALAN HYDROCHLORIDE [Suspect]
     Indication: INTRAOCULAR RETINOBLASTOMA
     Dosage: 7.5MG SINGLE DOSE
     Route: 047

REACTIONS (1)
  - PYREXIA [None]
